FAERS Safety Report 8774830 (Version 1)
Quarter: 2012Q4

REPORT INFORMATION
  Report Type: 
  Country: SE (occurrence: SE)
  Receive Date: 20120910
  Receipt Date: 20120910
  Transmission Date: 20130627
  Serious: Yes (Other)
  Sender: FDA-Public Use
  Company Number: SE-AMGEN-SWESP2012037490

PATIENT
  Sex: Female

DRUGS (4)
  1. ARANESP [Suspect]
     Indication: PRODUCT USED FOR UNKNOWN INDICATION
     Dosage: 30 mug, qwk
     Route: 058
  2. TACROLIMUS [Concomitant]
  3. IMURAN                             /00001501/ [Concomitant]
  4. PREDNISONE [Concomitant]

REACTIONS (3)
  - Abortion spontaneous [Unknown]
  - Iron deficiency [Unknown]
  - Haemoglobin abnormal [Unknown]
